FAERS Safety Report 5608553-2 (Version None)
Quarter: 2008Q1

REPORT INFORMATION
  Report Type: 
  Country: None (occurrence: None)
  Receive Date: 20080125
  Receipt Date: 20080112
  Transmission Date: 20080703
  Serious: Yes (Other)
  Sender: FDA-Public Use
  Company Number: CHNY2008DE00580

PATIENT
  Age: 29 Year
  Sex: Female

DRUGS (1)
  1. OTRIVEN (NCH)(XYLOMETAZOLINE HYDROCHLORIDE [Suspect]
     Dosage: 1 PUFF PER NOSTRIL EVERY HOUR, NASAL
     Route: 045

REACTIONS (4)
  - DRUG DEPENDENCE [None]
  - INTENTIONAL DRUG MISUSE [None]
  - NASAL SEPTUM DEVIATION [None]
  - OVERDOSE [None]
